FAERS Safety Report 16741046 (Version 1)
Quarter: 2019Q3

REPORT INFORMATION
  Report Type: Spontaneous
  Country: CH (occurrence: CH)
  Receive Date: 20190826
  Receipt Date: 20190826
  Transmission Date: 20191005
  Serious: Yes (Hospitalization, Other)
  Sender: FDA-Public Use
  Company Number: PHHY2019CH196951

PATIENT

DRUGS (1)
  1. METHOTREXATE. [Suspect]
     Active Substance: METHOTREXATE
     Indication: RHEUMATOID ARTHRITIS
     Dosage: 15 G, QD
     Route: 065

REACTIONS (5)
  - Product prescribing error [Unknown]
  - Contusion [Unknown]
  - Poisoning [Unknown]
  - Spinal disorder [Unknown]
  - Sepsis [Unknown]
